FAERS Safety Report 5053410-6 (Version None)
Quarter: 2006Q3

REPORT INFORMATION
  Report Type: 
  Country: None (occurrence: None)
  Receive Date: 20060712
  Receipt Date: 20060628
  Transmission Date: 20061208
  Serious: Yes (Other)
  Sender: FDA-Public Use
  Company Number: 2006074301

PATIENT
  Age: 47 Year
  Sex: Female

DRUGS (9)
  1. CORTEF [Suspect]
     Indication: ADDISON'S DISEASE
     Dosage: SEE IMAGE
     Route: 048
     Dates: end: 20060615
  2. CORTEF [Suspect]
     Indication: ADDISON'S DISEASE
     Dosage: SEE IMAGE
     Route: 048
     Dates: start: 20051001
  3. FLORINEF [Suspect]
     Indication: ADDISON'S DISEASE
  4. LEVOTHYROXINE SODIUM [Suspect]
  5. PREDNISONE TAB [Suspect]
     Indication: ADDISON'S DISEASE
     Dates: start: 20060101
  6. LEVOTHYROXINE SODIUM [Concomitant]
  7. PROVERA [Concomitant]
  8. THYROID TAB [Concomitant]
  9. PREMARIN [Concomitant]

REACTIONS (11)
  - BLOOD PRESSURE DECREASED [None]
  - BLOOD SODIUM DECREASED [None]
  - CHEST DISCOMFORT [None]
  - CHEST PAIN [None]
  - DEHYDRATION [None]
  - DRUG INTERACTION [None]
  - DYSPNOEA [None]
  - HEART RATE INCREASED [None]
  - HYPERHIDROSIS [None]
  - OVERDOSE [None]
  - WEIGHT DECREASED [None]
